FAERS Safety Report 9715313 (Version 3)
Quarter: 2013Q4

REPORT INFORMATION
  Report Type: Spontaneous
  Country: JP (occurrence: JP)
  Receive Date: 20131127
  Receipt Date: 20131227
  Transmission Date: 20140711
  Serious: Yes (Hospitalization, Other)
  Sender: FDA-Public Use
  Company Number: JP-AMGEN-JPNOT2013075505

PATIENT
  Age: 46 Year
  Sex: Female
  Weight: 61 kg

DRUGS (4)
  1. RANMARK [Suspect]
     Indication: METASTASES TO BONE
     Dosage: 120 MG, UNK
     Route: 058
     Dates: start: 20130913
  2. TS-1 [Suspect]
     Indication: BREAST CANCER RECURRENT
     Dosage: 120MG/BODY/D1-28/6W
     Route: 048
     Dates: start: 20130924
  3. OXYCONTIN [Concomitant]
     Dosage: UNK
     Route: 048
     Dates: start: 20130913
  4. FENTOS [Concomitant]
     Dosage: UNKNOWN
     Route: 061
     Dates: start: 20130918

REACTIONS (2)
  - Hepatic function abnormal [Recovering/Resolving]
  - Hypocalcaemia [Recovered/Resolved]
